FAERS Safety Report 9835993 (Version 7)
Quarter: 2014Q2

REPORT INFORMATION
  Report Type: Spontaneous
  Country: JP (occurrence: JP)
  Receive Date: 20140122
  Receipt Date: 20140420
  Transmission Date: 20141212
  Serious: Yes (Death, Disabling, Other)
  Sender: FDA-Public Use
  Company Number: PHHY2013JP152905

PATIENT
  Sex: Male
  Weight: 79 kg

DRUGS (8)
  1. EXELON PATCH [Suspect]
     Indication: DEMENTIA ALZHEIMER^S TYPE
     Dosage: 4.5 MG, DAILY
     Route: 062
     Dates: start: 20130807
  2. EXELON PATCH [Suspect]
     Dosage: 9 MG, DAILY
     Route: 062
     Dates: start: 20130918, end: 20131119
  3. FEBURIC [Concomitant]
     Indication: HYPERURICAEMIA
     Dosage: 20 MG, UNK
     Route: 048
     Dates: start: 20130717, end: 20130730
  4. BACTRAMIN [Concomitant]
     Indication: PROPHYLAXIS
     Dosage: 2 DF, UNK
     Route: 048
     Dates: start: 20130717, end: 20130730
  5. PROTECADIN [Concomitant]
     Indication: GASTRITIS
     Dosage: 20 MG, UNK
     Route: 048
     Dates: start: 20130717, end: 20130730
  6. MAGMITT [Concomitant]
     Indication: CONSTIPATION
     Dosage: 990 MG, UNK
     Route: 048
     Dates: start: 20130717, end: 20130730
  7. REBAMIPIDE [Concomitant]
     Indication: GASTRITIS
     Dosage: 300 MG, UNK
     Route: 048
     Dates: start: 20130717, end: 20130730
  8. VFEND [Concomitant]
     Indication: SYSTEMIC MYCOSIS
     Dosage: 50 MG, UNK
     Route: 048
     Dates: start: 20130717, end: 20130730

REACTIONS (14)
  - Platelet count decreased [Fatal]
  - Lymphoma [Fatal]
  - Haemoglobin decreased [Fatal]
  - Haematocrit decreased [Fatal]
  - Aspartate aminotransferase increased [Fatal]
  - Alanine aminotransferase increased [Fatal]
  - Blood alkaline phosphatase increased [Fatal]
  - Blood bilirubin increased [Fatal]
  - Blood sodium increased [Fatal]
  - Blood urea increased [Fatal]
  - Neoplasm progression [Fatal]
  - Gamma-glutamyltransferase increased [Unknown]
  - Blood lactate dehydrogenase increased [Unknown]
  - Drug ineffective [Unknown]
